FAERS Safety Report 19651128 (Version 5)
Quarter: 2022Q2

REPORT INFORMATION
  Report Type: Spontaneous
  Country: JP (occurrence: JP)
  Receive Date: 20210802
  Receipt Date: 20220527
  Transmission Date: 20220721
  Serious: Yes (Hospitalization, Other)
  Sender: FDA-Public Use
  Company Number: JP-BRISTOL-MYERS SQUIBB COMPANY-BMS-2021-074621

PATIENT
  Age: 66 Year
  Sex: Male

DRUGS (2)
  1. OPDIVO [Suspect]
     Active Substance: NIVOLUMAB
     Indication: Hypopharyngeal cancer
     Route: 041
     Dates: start: 20200508, end: 20210203
  2. OPDIVO [Suspect]
     Active Substance: NIVOLUMAB
     Dosage: 480 MG
     Route: 041
     Dates: start: 20210203, end: 20210623

REACTIONS (2)
  - Polychondritis [Recovering/Resolving]
  - Chondritis [Unknown]

NARRATIVE: CASE EVENT DATE: 20210704
